FAERS Safety Report 23024062 (Version 1)
Quarter: 2023Q4

REPORT INFORMATION
  Report Type: Spontaneous
  Country: JP (occurrence: JP)
  Receive Date: 20231004
  Receipt Date: 20231004
  Transmission Date: 20240110
  Serious: Yes (Other)
  Sender: FDA-Public Use
  Company Number: JP-TAKEDA-2023TJP012801

PATIENT
  Age: 4 Decade
  Sex: Female

DRUGS (3)
  1. ENTYVIO [Suspect]
     Active Substance: VEDOLIZUMAB
     Indication: Colitis ulcerative
     Dosage: 300 MILLIGRAM
     Route: 041
  2. PREDNISOLONE [Concomitant]
     Active Substance: PREDNISOLONE
     Dosage: UNK
     Route: 065
  3. PREDNISOLONE SODIUM PHOSPHATE [Concomitant]
     Active Substance: PREDNISOLONE SODIUM PHOSPHATE
     Dosage: UNK
     Route: 065

REACTIONS (1)
  - Rectal stenosis [Recovered/Resolved]
